FAERS Safety Report 9293681 (Version 1)
Quarter: 2013Q2

REPORT INFORMATION
  Report Type: Spontaneous
  Country: US (occurrence: US)
  Receive Date: 20130516
  Receipt Date: 20130516
  Transmission Date: 20140414
  Serious: Yes (Other)
  Sender: FDA-Public Use
  Company Number: US-SHIONOGI, INC-2013000178

PATIENT
  Age: 21 Year
  Sex: Male

DRUGS (4)
  1. KAPVAY [Suspect]
     Indication: ATTENTION DEFICIT/HYPERACTIVITY DISORDER
     Dosage: 0.1 MG, TID
     Route: 065
     Dates: start: 201212, end: 201304
  2. KAPVAY [Suspect]
     Indication: OFF LABEL USE
  3. KAPVAY [Suspect]
     Indication: OFF LABEL USE
  4. VIVITROL [Concomitant]
     Indication: DRUG ABUSE
     Dosage: UNK
     Route: 065

REACTIONS (4)
  - Dependence [Unknown]
  - Depressed mood [Unknown]
  - Off label use [Unknown]
  - Medication error [Unknown]
